FAERS Safety Report 12402919 (Version 1)
Quarter: 2016Q2

REPORT INFORMATION
  Report Type: Spontaneous
  Country: DK (occurrence: DK)
  Receive Date: 20160525
  Receipt Date: 20160525
  Transmission Date: 20160815
  Serious: Yes (Hospitalization)
  Sender: FDA-Public Use
  Company Number: DK-TEVA-660687ISR

PATIENT
  Age: 64 Year
  Sex: Female

DRUGS (1)
  1. IBUPROFEN TEVA 400 MG [Suspect]
     Active Substance: IBUPROFEN
     Route: 065

REACTIONS (2)
  - Dyspnoea [Recovered/Resolved]
  - Laryngeal pain [Recovered/Resolved]
